FAERS Safety Report 6189906-3 (Version None)
Quarter: 2009Q2

REPORT INFORMATION
  Report Type: 
  Country: None (occurrence: None)
  Receive Date: 20090514
  Receipt Date: 20090507
  Transmission Date: 20091009
  Serious: Yes (Congenital Anomaly, Other)
  Sender: FDA-Public Use
  Company Number: SA-ROXANE LABORATORIES, INC.-2009-RO-00469RO

PATIENT
  Sex: Female
  Weight: 1 kg

DRUGS (1)
  1. METHOTREXATE [Suspect]
     Indication: DRUG EXPOSURE DURING PREGNANCY
     Route: 064

REACTIONS (24)
  - ANOMALY OF ORBIT, CONGENITAL [None]
  - CEREBELLAR HYPOPLASIA [None]
  - CLEFT PALATE [None]
  - CONGENITAL ANOMALY [None]
  - CONGENITAL CENTRAL NERVOUS SYSTEM ANOMALY [None]
  - CONGENITAL HYPERTRICHOSIS [None]
  - CONGENITAL NOSE MALFORMATION [None]
  - DELAYED FONTANELLE CLOSURE [None]
  - DYSMORPHISM [None]
  - EXOPHTHALMOS [None]
  - EYELASH THICKENING [None]
  - FOETAL GROWTH RETARDATION [None]
  - HAIR GROWTH ABNORMAL [None]
  - HEAD DEFORMITY [None]
  - HOLOPROSENCEPHALY [None]
  - HYPERTELORISM OF ORBIT [None]
  - LIMB HYPOPLASIA CONGENITAL [None]
  - LIMB MALFORMATION [None]
  - LOW SET EARS [None]
  - MESOMELIA [None]
  - MICROGNATHIA [None]
  - POOR SUCKING REFLEX [None]
  - PREMATURE CLOSURE OF CRANIAL SUTURES [None]
  - PROMINENT EPICANTHAL FOLDS [None]
